FAERS Safety Report 8972561 (Version 1)
Quarter: 2012Q4

REPORT INFORMATION
  Report Type: 
  Country: US (occurrence: US)
  Receive Date: 20121218
  Receipt Date: 20121218
  Transmission Date: 20130627
  Serious: Yes (Hospitalization)
  Sender: FDA-Public Use
  Company Number: US-PFIZER INC-2012318533

PATIENT
  Age: 64 Year
  Sex: Female
  Weight: 91 kg

DRUGS (3)
  1. RAPAMUNE [Suspect]
     Indication: PROPHYLAXIS AGAINST HEART TRANSPLANT REJECTION
     Dosage: 0.5 mg, 1x/day
     Route: 048
  2. CELLCEPT [Concomitant]
     Dosage: 500 mg, 1x/day
  3. CYCLOSPORINE [Concomitant]
     Dosage: UNK

REACTIONS (1)
  - Infection [Unknown]
